FAERS Safety Report 5758705-6 (Version None)
Quarter: 2008Q2

REPORT INFORMATION
  Report Type: 
  Country: None (occurrence: None)
  Receive Date: 20080604
  Receipt Date: 20080526
  Transmission Date: 20081010
  Serious: Yes (Life-Threatening)
  Sender: FDA-Public Use
  Company Number: JP-JNJFOC-20080503430

PATIENT
  Sex: Female

DRUGS (11)
  1. MICONAZOLE [Suspect]
     Route: 048
  2. MICONAZOLE [Suspect]
     Indication: ORAL CANDIDIASIS
     Route: 048
  3. WARFARIN SODIUM [Interacting]
     Route: 048
  4. WARFARIN SODIUM [Interacting]
     Route: 048
  5. WARFARIN SODIUM [Interacting]
     Indication: ANGINA PECTORIS
     Route: 048
  6. DIGOXIN [Concomitant]
     Route: 048
  7. SPIRONOLACTONE [Concomitant]
     Route: 048
  8. DIPYRIDAMOLE [Concomitant]
     Route: 048
  9. MAGNESIUM OXIDE [Concomitant]
     Route: 048
  10. FAMOTIDINE [Concomitant]
     Route: 048
  11. NITROGLYCERIN [Concomitant]
     Route: 062

REACTIONS (7)
  - DRUG INTERACTION [None]
  - INTERNATIONAL NORMALISED RATIO INCREASED [None]
  - OCULAR HYPERAEMIA [None]
  - OEDEMA PERIPHERAL [None]
  - PURPURA [None]
  - RASH [None]
  - RETINAL HAEMORRHAGE [None]
